FAERS Safety Report 25703393 (Version 1)
Quarter: 2025Q3

REPORT INFORMATION
  Report Type: Report from Study
  Country: US (occurrence: US)
  Receive Date: 20250820
  Receipt Date: 20250820
  Transmission Date: 20251020
  Serious: Yes (Death)
  Sender: ALEXION PHARMACEUTICALS
  Company Number: US-AstraZeneca-CH-00932501A

PATIENT
  Sex: Male

DRUGS (1)
  1. EPLONTERSEN SODIUM [Suspect]
     Active Substance: EPLONTERSEN SODIUM
     Indication: Hereditary neuropathic amyloidosis
     Dosage: 45 MILLIGRAM, QMONTH
     Dates: start: 20241205, end: 20250705

REACTIONS (1)
  - Death [Fatal]
